FAERS Safety Report 8676793 (Version 2)
Quarter: 2013Q4

REPORT INFORMATION
  Report Type: Spontaneous
  Country: CA (occurrence: CA)
  Receive Date: 20120723
  Receipt Date: 20131031
  Transmission Date: 20140711
  Serious: Yes (Other)
  Sender: FDA-Public Use
  Company Number: CA-009507513-1207CAN004958

PATIENT
  Sex: 0

DRUGS (1)
  1. HEPALEAN LOK, USP [Suspect]
     Indication: ARTERIAL CATHETERISATION

REACTIONS (1)
  - Skin necrosis [Unknown]
